FAERS Safety Report 21082268 (Version 1)
Quarter: 2022Q3

REPORT INFORMATION
  Report Type: Spontaneous
  Country: FR (occurrence: FR)
  Receive Date: 20220714
  Receipt Date: 20220714
  Transmission Date: 20221026
  Serious: Yes (Hospitalization, Congenital Anomaly)
  Sender: FDA-Public Use
  Company Number: None

PATIENT
  Age: 1 Day
  Sex: Male

DRUGS (10)
  1. VALSARTAN [Suspect]
     Active Substance: VALSARTAN
     Indication: Hypertension
     Dosage: UNIT DOSE: 160MG, FREQUENCY TIME: 1 DAYS
     Dates: end: 20210903
  2. NORMACOL LAVEMENT ADULTS [Concomitant]
     Indication: Product used for unknown indication
     Dosage: SINGLE-DOSE CONTAINER
  3. CHOLECALCIFEROL [Concomitant]
     Active Substance: CHOLECALCIFEROL
     Indication: Vitamin supplementation
     Dosage: UNIT DOSE: 1 DF, FREQUENCY TIME: 1 MONTHS
     Dates: end: 20210903
  4. AMLODIPINE\INDAPAMIDE [Concomitant]
     Active Substance: AMLODIPINE\INDAPAMIDE
     Indication: Hypertension
     Dosage: STRENGTH:1.5 MG/10 MG, UNIT DOSE: 1DF, FREQUENCY TIME: 1 DAYS
     Dates: end: 20210903
  5. PANTOPRAZOLE [Concomitant]
     Active Substance: PANTOPRAZOLE
     Indication: Product used for unknown indication
     Dosage: UNIT DOSE: 40MG, FREQUENCY TIME: 1 DAYS
     Dates: end: 20210903
  6. TRIMEBUTINE MALEATE [Concomitant]
     Active Substance: TRIMEBUTINE MALEATE
     Indication: Abdominal pain
     Dosage: UNIT DOSE:100MG
  7. DESOGESTREL [Concomitant]
     Active Substance: DESOGESTREL
     Indication: Contraception
     Dosage: UNIT DOSE: 1DF, FREQUENCY TIME: 1 DAYS
     Dates: end: 20210903
  8. POLYETHYLENE GLYCOL 4000 [Concomitant]
     Active Substance: POLYETHYLENE GLYCOL 4000
     Indication: Constipation
     Dosage: UNIT DOSE:10G
  9. CARBOSYMAG [Concomitant]
     Indication: Dyspepsia
     Dosage: UNIT DOSE: 1DF, FREQUENCY TIME: 3 DAYS
     Dates: end: 20210903
  10. MINERAL OIL [Concomitant]
     Active Substance: MINERAL OIL
     Indication: Constipation
     Dates: end: 20210903

REACTIONS (3)
  - Microcephaly [Not Recovered/Not Resolved]
  - Congenital multiplex arthrogryposis [Not Recovered/Not Resolved]
  - Renal failure neonatal [Recovering/Resolving]

NARRATIVE: CASE EVENT DATE: 20210901
